FAERS Safety Report 4554537-5 (Version None)
Quarter: 2005Q1

REPORT INFORMATION
  Report Type: 
  Country: None (occurrence: None)
  Receive Date: 20041227
  Receipt Date: 20041108
  Transmission Date: 20050727
  Serious: No
  Sender: FDA-Public Use
  Company Number: SP00364

PATIENT
  Age: 43 Year
  Sex: Female
  Weight: 49.8957 kg

DRUGS (6)
  1. XIFAXAN [Suspect]
     Indication: CROHN'S DISEASE
     Dosage: 200MG/BID, ORAL
     Route: 048
     Dates: start: 20041007
  2. PENTASA [Concomitant]
  3. CALCIUM GLUCONATE [Concomitant]
  4. IRON [Concomitant]
  5. FOLIC ACID [Concomitant]
  6. FLAXSEED OIL [Concomitant]

REACTIONS (1)
  - FAECAL INCONTINENCE [None]
